APPROVED DRUG PRODUCT: FOLEX PFS
Active Ingredient: METHOTREXATE SODIUM
Strength: EQ 25MG BASE/ML
Dosage Form/Route: INJECTABLE;INJECTION
Application: A081242 | Product #001
Applicant: PHARMACIA AND UPJOHN CO
Approved: Aug 23, 1991 | RLD: No | RS: No | Type: DISCN